FAERS Safety Report 5536499-7 (Version None)
Quarter: 2007Q4

REPORT INFORMATION
  Report Type: 
  Country: None (occurrence: None)
  Receive Date: 20071206
  Receipt Date: 20071022
  Transmission Date: 20080405
  Serious: Yes (Other)
  Sender: FDA-Public Use
  Company Number: US-AMGEN-QUU247690

PATIENT
  Sex: Female
  Weight: 65.4 kg

DRUGS (10)
  1. ENBREL [Suspect]
     Indication: RHEUMATOID ARTHRITIS
     Route: 058
     Dates: start: 20070412, end: 20070801
  2. METHOTREXATE [Concomitant]
     Dates: start: 20000101, end: 20070801
  3. PREDNISONE TAB [Concomitant]
     Dates: start: 20020101
  4. NORVASC [Concomitant]
  5. TOPROL-XL [Concomitant]
  6. DIAZEPAM [Concomitant]
  7. ACIPHEX [Concomitant]
  8. ASPIRIN [Concomitant]
  9. FAMOTIDINE [Concomitant]
  10. MECLIZINE [Concomitant]

REACTIONS (1)
  - SQUAMOUS CELL CARCINOMA OF SKIN [None]
